FAERS Safety Report 22923093 (Version 2)
Quarter: 2023Q4

REPORT INFORMATION
  Report Type: Spontaneous
  Country: GB (occurrence: GB)
  Receive Date: 20230908
  Receipt Date: 20231016
  Transmission Date: 20240110
  Serious: Yes (Death, Other)
  Sender: FDA-Public Use
  Company Number: None

PATIENT
  Sex: Male

DRUGS (12)
  1. CLOPIDOGREL [Suspect]
     Active Substance: CLOPIDOGREL BISULFATE
     Indication: Cerebrovascular accident
  2. FUROSEMIDE [Concomitant]
     Active Substance: FUROSEMIDE
  3. NAPROXEN [Concomitant]
     Active Substance: NAPROXEN
  4. SIMVASTATIN [Concomitant]
     Active Substance: SIMVASTATIN
     Dosage: AT NIGHT
  5. IBUPROFEN [Concomitant]
     Active Substance: IBUPROFEN
     Dosage: ASD
  6. AMLODIPINE [Concomitant]
     Active Substance: AMLODIPINE BESYLATE
  7. BISOPROLOL [Concomitant]
     Active Substance: BISOPROLOL\BISOPROLOL FUMARATE
  8. TAMSULOSIN [Concomitant]
     Active Substance: TAMSULOSIN
  9. METFORMIN [Concomitant]
     Active Substance: METFORMIN HYDROCHLORIDE
     Dosage: 1G BD
  10. RAMIPRIL [Concomitant]
     Active Substance: RAMIPRIL
  11. LORATADINE [Concomitant]
     Active Substance: LORATADINE
  12. LANSOPRAZOLE [Concomitant]
     Active Substance: LANSOPRAZOLE

REACTIONS (4)
  - Subarachnoid haemorrhage [Fatal]
  - Subdural haematoma [Fatal]
  - Cerebral haemorrhage [Fatal]
  - Fall [Not Recovered/Not Resolved]
